FAERS Safety Report 10433294 (Version 1)
Quarter: 2014Q3

REPORT INFORMATION
  Report Type: Other
  Country: US (occurrence: US)
  Receive Date: 20140905
  Receipt Date: 20140905
  Transmission Date: 20150326
  Serious: Yes (Other)
  Sender: FDA-Public Use
  Company Number: US-ENDO PHARMACEUTICALS INC-BACL20140008

PATIENT
  Age: 19 Year
  Sex: Female

DRUGS (2)
  1. BACLOFEN TABLETS [Suspect]
     Active Substance: BACLOFEN
     Indication: MUSCLE SPASTICITY
     Route: 048
  2. BACLOFEN TABLETS [Suspect]
     Active Substance: BACLOFEN
     Route: 048

REACTIONS (8)
  - Toxicity to various agents [None]
  - Idiosyncratic drug reaction [None]
  - Muscle fatigue [None]
  - Chest pain [None]
  - Respiratory disorder [Recovered/Resolved]
  - Headache [None]
  - Speech disorder [None]
  - Hiccups [Recovered/Resolved]

NARRATIVE: CASE EVENT DATE: 201408
